FAERS Safety Report 9156186 (Version 1)
Quarter: 2013Q1

REPORT INFORMATION
  Report Type: Spontaneous
  Country: US (occurrence: US)
  Receive Date: 20130123
  Receipt Date: 20130123
  Transmission Date: 20140127
  Serious: No
  Sender: FDA-Public Use
  Company Number: US-BRACCO-007711

PATIENT
  Age: 46 Year
  Sex: Female

DRUGS (2)
  1. MULTIHANCE [Suspect]
     Indication: NUCLEAR MAGNETIC RESONANCE IMAGING
     Dosage: REPORTER WAS NOT SURE IF ALL OF THE 14 ML DOSE WAS ADMINISTERED
     Dates: start: 201112, end: 201112
  2. MULTIHANCE [Suspect]
     Indication: PRODUCT USED FOR UNKNOWN INDICATION
     Dosage: REPORTER WAS NOT SURE IF ALL OF THE 14 ML DOSE WAS ADMINISTERED
     Dates: start: 201112, end: 201112

REACTIONS (10)
  - Extravasation [Unknown]
  - Eye disorder [Unknown]
  - Feeling of body temperature change [Unknown]
  - Local swelling [Recovered/Resolved]
  - Muscular weakness [Unknown]
  - Pain in extremity [Unknown]
  - Tenderness [Unknown]
  - Rash [Unknown]
  - Dry eye [Unknown]
  - Burning sensation [Unknown]
